FAERS Safety Report 10021532 (Version 2)
Quarter: 2014Q2

REPORT INFORMATION
  Report Type: Spontaneous
  Country: JP (occurrence: JP)
  Receive Date: 20140319
  Receipt Date: 20140415
  Transmission Date: 20141212
  Serious: Yes (Other)
  Sender: FDA-Public Use
  Company Number: JP-PFIZER INC-2014079040

PATIENT
  Age: 76 Year
  Sex: Male
  Weight: 40.4 kg

DRUGS (4)
  1. HYDROCORTISONE [Suspect]
     Indication: HYPOPHYSITIS
     Dosage: 20 MG, DAILY
  2. HYDROCORTISONE [Suspect]
     Indication: LUNG ABSCESS
  3. PREDNISOLONE [Suspect]
     Indication: HYPOPHYSITIS
     Dosage: 20 MG, DAILY
  4. LEVOTHYROXINE [Concomitant]
     Indication: HYPOPHYSITIS
     Dosage: 25 MG, DAILY

REACTIONS (1)
  - Diabetes insipidus [Unknown]
